FAERS Safety Report 4911868-4 (Version None)
Quarter: 2006Q1

REPORT INFORMATION
  Report Type: 
  Country: None (occurrence: None)
  Receive Date: 20060213
  Receipt Date: 20060213
  Transmission Date: 20060701
  Serious: Yes (Death)
  Sender: FDA-Public Use
  Company Number: None

PATIENT
  Age: 54 Year
  Sex: Male

DRUGS (6)
  1. TEMODAR [Suspect]
     Indication: GLIOBLASTOMA MULTIFORME
     Dosage: TEMODAR 100MG ORAL ONCE A DAY
     Route: 048
     Dates: start: 20051205, end: 20051227
  2. TARCEVA [Suspect]
     Indication: GLIOBLASTOMA MULTIFORME
     Dosage: TARCEVA  100MG  ORAL  ONCE A DAY
     Route: 048
     Dates: start: 20051205, end: 20060101
  3. LEVAQUIN [Concomitant]
  4. ZYPREXA ZYDIS [Concomitant]
  5. LEXAPRO [Concomitant]
  6. DECADRON SRC [Concomitant]

REACTIONS (4)
  - CONSTIPATION [None]
  - LARGE INTESTINE PERFORATION [None]
  - PANCYTOPENIA [None]
  - PYREXIA [None]
